FAERS Safety Report 14456881 (Version 2)
Quarter: 2018Q1

REPORT INFORMATION
  Report Type: Spontaneous
  Country: US (occurrence: US)
  Receive Date: 20180130
  Receipt Date: 20180227
  Transmission Date: 20180509
  Serious: Yes (Hospitalization, Other)
  Sender: FDA-Public Use
  Company Number: US-LUPIN PHARMACEUTICALS INC.-2018-00381

PATIENT
  Age: 35 Year
  Sex: Male

DRUGS (6)
  1. MESALAMINE. [Concomitant]
     Active Substance: MESALAMINE
     Indication: INFECTIOUS COLITIS
     Dosage: UNK
     Route: 065
  2. INFLIXIMAB [Concomitant]
     Active Substance: INFLIXIMAB
     Indication: INFECTIOUS COLITIS
     Dosage: UNK
     Route: 065
  3. PREDNISONE. [Concomitant]
     Active Substance: PREDNISONE
     Indication: INFECTIOUS COLITIS
     Dosage: UNK
     Route: 065
  4. TRAMADOL. [Suspect]
     Active Substance: TRAMADOL
     Indication: ABDOMINAL PAIN
     Dosage: UNK
     Route: 065
  5. OXYCODONE [Suspect]
     Active Substance: OXYCODONE
     Indication: ABDOMINAL PAIN
     Dosage: UNK
     Route: 065
  6. AZATHIOPRINE. [Concomitant]
     Active Substance: AZATHIOPRINE
     Indication: INFECTIOUS COLITIS
     Dosage: UNK
     Route: 065

REACTIONS (3)
  - Irritable bowel syndrome [Unknown]
  - Constipation [Unknown]
  - Narcotic bowel syndrome [Unknown]
